FAERS Safety Report 19475358 (Version 1)
Quarter: 2021Q2

REPORT INFORMATION
  Report Type: Spontaneous
  Country: US (occurrence: US)
  Receive Date: 20210629
  Receipt Date: 20210629
  Transmission Date: 20210717
  Serious: No
  Sender: FDA-Public Use
  Company Number: US-PFIZER INC-2019298348

PATIENT
  Age: 77 Year
  Sex: Male

DRUGS (2)
  1. NORVASC [Suspect]
     Active Substance: AMLODIPINE BESYLATE
     Indication: HYPERTENSION
     Dosage: 10 MG
     Route: 048
  2. NORVASC [Suspect]
     Active Substance: AMLODIPINE BESYLATE
     Dosage: UNK

REACTIONS (8)
  - Poor quality product administered [Unknown]
  - Dizziness [Unknown]
  - Product complaint [Unknown]
  - Headache [Unknown]
  - Blood pressure increased [Unknown]
  - Vertigo [Unknown]
  - Palpitations [Unknown]
  - Illness [Unknown]

NARRATIVE: CASE EVENT DATE: 20190520
